FAERS Safety Report 22302345 (Version 1)
Quarter: 2023Q2

REPORT INFORMATION
  Report Type: Other
  Country: RS (occurrence: None)
  Receive Date: 20230510
  Receipt Date: 20230510
  Transmission Date: 20230722
  Serious: Yes (Hospitalization)
  Sender: FDA-Public Use
  Company Number: RS-ROCHE-3345049

PATIENT
  Age: 58 Year
  Sex: Female

DRUGS (5)
  1. RITUXIMAB [Suspect]
     Active Substance: RITUXIMAB
     Indication: Rheumatoid arthritis
     Dosage: TWO INFUSIONS WITH 1000 MG OF THE DRUG ADMINISTERED TWO WEEKS APART WITH PREMEDICATION. SHE HAD A TO
     Route: 042
     Dates: start: 201005, end: 202006
  2. TOCILIZUMAB [Suspect]
     Active Substance: TOCILIZUMAB
     Indication: COVID-19
     Dosage: IN TWO DOSES 12 HOURS APART.
     Route: 065
  3. METHOTREXATE [Concomitant]
     Active Substance: METHOTREXATE
     Dosage: THE WEEKLY DOSE OF METHOTREXATE WAS GRADUALLY ESCALATED TO THE MAXIMUM TOLERATED DOSE OF 12.5 MG
  4. PREDNISONE [Concomitant]
     Active Substance: PREDNISONE
     Dates: start: 2009
  5. BARICITINIB [Concomitant]
     Active Substance: BARICITINIB
     Dates: start: 202109

REACTIONS (2)
  - COVID-19 pneumonia [Unknown]
  - Off label use [Unknown]
